FAERS Safety Report 7806352-4 (Version None)
Quarter: 2011Q4

REPORT INFORMATION
  Report Type: 
  Country: None (occurrence: None)
  Receive Date: 20111011
  Receipt Date: 20110928
  Transmission Date: 20120403
  Serious: Yes (Hospitalization, Other)
  Sender: FDA-Public Use
  Company Number: CA-ELI_LILLY_AND_COMPANY-CA201109007967

PATIENT
  Sex: Male

DRUGS (11)
  1. ZYPREXA [Suspect]
     Indication: SCHIZOPHRENIA, PARANOID TYPE
     Dosage: 10 MG, EACH EVENING
  2. PAXIL [Concomitant]
  3. TRIHEXYPHENIDYL HCL [Concomitant]
  4. QUETIAPINE FUMARATE [Concomitant]
  5. ZYPREXA ZYDIS [Suspect]
     Dosage: 15 MG, EACH EVENING
  6. ZYPREXA ZYDIS [Suspect]
     Indication: SCHIZOPHRENIA, PARANOID TYPE
     Dosage: 10 MG, EACH EVENING
     Dates: start: 20010611
  7. VENLAFAXINE [Concomitant]
  8. CLOZAPINE [Concomitant]
  9. SERTRALINE HYDROCHLORIDE [Concomitant]
  10. ZYPREXA ZYDIS [Suspect]
     Dosage: 20 MG, EACH EVENING
  11. BENZTROPINE MESYLATE [Concomitant]

REACTIONS (4)
  - PSEUDOCYST [None]
  - DIABETES MELLITUS [None]
  - PANCREATITIS HAEMORRHAGIC [None]
  - CLOSTRIDIUM TEST POSITIVE [None]
